FAERS Safety Report 9006012 (Version 1)
Quarter: 2013Q1

REPORT INFORMATION
  Report Type: Spontaneous
  Country: US (occurrence: US)
  Receive Date: 20130109
  Receipt Date: 20130109
  Transmission Date: 20140127
  Serious: Yes (Other)
  Sender: FDA-Public Use
  Company Number: PHEH2013US000797

PATIENT
  Sex: Male

DRUGS (7)
  1. EXELON PATCH [Suspect]
     Route: 062
  2. HYDROCHLOROTHIAZIDE [Concomitant]
  3. NAMENDA [Concomitant]
  4. LIPITOR [Concomitant]
  5. CORGARD [Concomitant]
  6. NADOLOL [Concomitant]
  7. PROCARDIA [Concomitant]

REACTIONS (2)
  - Dementia Alzheimer^s type [Not Recovered/Not Resolved]
  - Condition aggravated [Not Recovered/Not Resolved]
